FAERS Safety Report 13646244 (Version 1)
Quarter: 2017Q2

REPORT INFORMATION
  Report Type: Spontaneous
  Country: US (occurrence: US)
  Receive Date: 20170612
  Receipt Date: 20170612
  Transmission Date: 20170830
  Serious: Yes (Life-Threatening)
  Sender: FDA-Public Use
  Company Number: None

PATIENT
  Age: 76 Year
  Sex: Female
  Weight: 68 kg

DRUGS (1)
  1. VENOFER [Suspect]
     Active Substance: IRON SUCROSE
     Indication: IRON DEFICIENCY ANAEMIA
     Dosage: OTHER FREQUENCY:3 DOSES OVER 2 WKS; INTRAVENOUS (NOT OTHERWISE SPECIFIED) ?
     Route: 042
     Dates: start: 20170605, end: 20170605

REACTIONS (5)
  - Dizziness [None]
  - Arthralgia [None]
  - Dyspnoea [None]
  - Blood pressure decreased [None]
  - Vomiting [None]

NARRATIVE: CASE EVENT DATE: 20170605
